FAERS Safety Report 9928477 (Version 2)
Quarter: 2014Q1

REPORT INFORMATION
  Report Type: Spontaneous
  Country: BE (occurrence: BE)
  Receive Date: 20140227
  Receipt Date: 20140227
  Transmission Date: 20141002
  Serious: Yes (Hospitalization, Other)
  Sender: FDA-Public Use
  Company Number: BE-ASTELLAS-2013EU010842

PATIENT
  Age: 84 Year
  Sex: Female
  Weight: 78 kg

DRUGS (10)
  1. BETMIGA [Suspect]
     Indication: HYPERTONIC BLADDER
     Dosage: 50 MG, UID/QD
     Route: 048
     Dates: start: 20131122, end: 20131127
  2. ELTHYRONE [Concomitant]
     Dosage: 175 MG, UNKNOWN/D
     Route: 065
  3. SOTALEX [Concomitant]
     Dosage: 0.5 DF, BID
     Route: 065
  4. FOSAMAX [Concomitant]
     Dosage: 10 MG, UNKNOWN/D
     Route: 065
  5. MICTONORM [Concomitant]
     Dosage: 30 MG, UNKNOWN/D
     Route: 065
  6. ARICEPT [Concomitant]
     Dosage: 5 MG, UNKNOWN/D
     Route: 065
  7. COVERAM [Concomitant]
     Dosage: 1 UNK, UNK
     Route: 065
  8. CARDIOASPIRINE [Concomitant]
     Dosage: UNK
     Route: 065
  9. OMEPRAZOLE [Concomitant]
     Dosage: 20 MG, UNKNOWN/D
     Route: 065
  10. XANAX [Concomitant]
     Dosage: 0.5 MG, UNKNOWN/D
     Route: 065

REACTIONS (3)
  - Headache [Recovered/Resolved]
  - Gastritis [Recovered/Resolved]
  - Dysuria [Recovered/Resolved]
